FAERS Safety Report 17687090 (Version 2)
Quarter: 2020Q2

REPORT INFORMATION
  Report Type: Report from Study
  Country: FR (occurrence: FR)
  Receive Date: 20200421
  Receipt Date: 20200427
  Transmission Date: 20200714
  Serious: Yes (Other)
  Sender: FDA-Public Use
  Company Number: FR-ADVANZ PHARMA-202003003347

PATIENT

DRUGS (1)
  1. HYDROXYCHLOROQUINE [Suspect]
     Active Substance: HYDROXYCHLOROQUINE
     Indication: CORONAVIRUS INFECTION
     Dosage: 400 MG, QD (FILM-COATED TABLET)
     Route: 048
     Dates: start: 20200402, end: 20200405

REACTIONS (2)
  - Hepatic failure [Unknown]
  - Off label use [Unknown]

NARRATIVE: CASE EVENT DATE: 20200402
